FAERS Safety Report 7089864-3 (Version None)
Quarter: 2010Q4

REPORT INFORMATION
  Report Type: 
  Country: None (occurrence: None)
  Receive Date: 20101108
  Receipt Date: 20101025
  Transmission Date: 20110411
  Serious: Yes (Other)
  Sender: FDA-Public Use
  Company Number: US-AMGEN-USASP2010001526

PATIENT

DRUGS (2)
  1. NEULASTA [Suspect]
     Indication: CHEMOTHERAPY
     Dates: start: 20100801
  2. CHEMOTHERAPEUTICS NOS [Concomitant]
     Indication: COLON CANCER
     Dates: start: 20100801

REACTIONS (2)
  - BONE PAIN [None]
  - COLON CANCER METASTATIC [None]
